FAERS Safety Report 9254761 (Version 1)
Quarter: 2013Q2

REPORT INFORMATION
  Report Type: Spontaneous
  Country: IL (occurrence: IL)
  Receive Date: 20130425
  Receipt Date: 20130425
  Transmission Date: 20140414
  Serious: Yes (Hospitalization)
  Sender: FDA-Public Use
  Company Number: IL-CELGENEUS-082-22393-13042434

PATIENT
  Sex: Male

DRUGS (2)
  1. ISTODAX [Suspect]
     Indication: PERIPHERAL T-CELL LYMPHOMA UNSPECIFIED
     Dosage: 4 INFUSIONS
     Route: 041
  2. ISTODAX [Suspect]
     Route: 041

REACTIONS (2)
  - Splenomegaly [Not Recovered/Not Resolved]
  - Full blood count decreased [Not Recovered/Not Resolved]
